FAERS Safety Report 17550924 (Version 1)
Quarter: 2020Q1

REPORT INFORMATION
  Report Type: Spontaneous
  Country: US (occurrence: US)
  Receive Date: 20200317
  Receipt Date: 20200317
  Transmission Date: 20200409
  Serious: No
  Sender: FDA-Public Use
  Company Number: US-EYEVANCE PHARMACEUTICALS-2020EYE00001

PATIENT
  Age: 61 Year
  Sex: Female

DRUGS (7)
  1. FLAREX [Suspect]
     Active Substance: FLUOROMETHOLONE ACETATE
     Dosage: 1 DROP TO LEFT EYE, 2X/DAY
     Route: 047
     Dates: start: 20200103, end: 20200109
  2. FLAREX [Suspect]
     Active Substance: FLUOROMETHOLONE ACETATE
     Indication: EYE INFECTION VIRAL
     Dosage: 1 DROP TO BOTH EYES, 4X/DAY
     Route: 047
     Dates: start: 201912, end: 20200102
  3. MURO 128 [Concomitant]
     Active Substance: SODIUM CHLORIDE
  4. FLAREX [Suspect]
     Active Substance: FLUOROMETHOLONE ACETATE
     Dosage: 1 DROP TO LEFT EYE, 1X/DAY
     Route: 047
     Dates: start: 20200110
  5. FRESHKOTE [Concomitant]
     Active Substance: POLYVINYL ALCOHOL\POVIDONE
  6. ^OTC^ RESTASIS [Concomitant]
  7. ACYCLOVIR. [Concomitant]
     Active Substance: ACYCLOVIR

REACTIONS (4)
  - Eye irritation [Recovered/Resolved]
  - Off label use [Not Recovered/Not Resolved]
  - Eye pruritus [Recovered/Resolved]
  - Eye discharge [Recovered/Resolved]

NARRATIVE: CASE EVENT DATE: 201912
